FAERS Safety Report 4990739-1 (Version None)
Quarter: 2006Q2

REPORT INFORMATION
  Report Type: 
  Country: None (occurrence: None)
  Receive Date: 20060427
  Receipt Date: 20060413
  Transmission Date: 20061013
  Serious: Yes (Hospitalization, Other)
  Sender: FDA-Public Use
  Company Number: 200602IM000143

PATIENT
  Age: 78 Year
  Sex: Male
  Weight: 89.8122 kg

DRUGS (4)
  1. BLINDED THERAPY (INTERFERON GAMMA-1B) [Suspect]
     Indication: IDIOPATHIC PULMONARY FIBROSIS
     Dosage: 200 UG, TIW, SUBCUTANEOUS
     Route: 058
     Dates: start: 20041231, end: 20060116
  2. GLIPIZIDE [Concomitant]
  3. SIMVASTATIN [Concomitant]
  4. SPIRIVA [Concomitant]

REACTIONS (2)
  - ACUTE CORONARY SYNDROME [None]
  - LUNG ADENOCARCINOMA STAGE I [None]
